FAERS Safety Report 13391244 (Version 3)
Quarter: 2017Q2

REPORT INFORMATION
  Report Type: Spontaneous
  Country: JP (occurrence: JP)
  Receive Date: 20170331
  Receipt Date: 20170501
  Transmission Date: 20170830
  Serious: Yes (Hospitalization, Other)
  Sender: FDA-Public Use
  Company Number: JP-009507513-1703JPN002861J

PATIENT
  Age: 7 Decade
  Sex: Female

DRUGS (8)
  1. TAKEPRON [Concomitant]
     Active Substance: LANSOPRAZOLE
     Route: 065
  2. HALCION [Concomitant]
     Active Substance: TRIAZOLAM
     Route: 048
  3. REBETOL [Suspect]
     Active Substance: RIBAVIRIN
     Indication: CHRONIC HEPATITIS C
     Dosage: UNK
     Route: 048
     Dates: start: 20160128, end: 20160422
  4. NOVORAPID [Concomitant]
     Active Substance: INSULIN ASPART
     Route: 051
  5. SOVALDI [Suspect]
     Active Substance: SOFOSBUVIR
     Indication: CHRONIC HEPATITIS C
     Dosage: 1 DF, UNK
     Route: 048
     Dates: start: 20160128, end: 20160422
  6. LAXOBERON [Concomitant]
     Active Substance: SODIUM PICOSULFATE
     Route: 048
  7. PORTOLAC [Concomitant]
     Active Substance: LACTITOL
     Route: 048
  8. LASIX [Concomitant]
     Active Substance: FUROSEMIDE
     Route: 065

REACTIONS (2)
  - Hepatocellular carcinoma [Recovered/Resolved]
  - Hepatitis [Unknown]

NARRATIVE: CASE EVENT DATE: 20160621
